FAERS Safety Report 14789110 (Version 1)
Quarter: 2018Q2

REPORT INFORMATION
  Report Type: Spontaneous
  Country: US (occurrence: US)
  Receive Date: 20180413
  Receipt Date: 20180413
  Transmission Date: 20180711
  Serious: Yes (Other)
  Sender: FDA-Public Use
  Company Number: None

PATIENT
  Age: 61 Year
  Sex: Female
  Weight: 90 kg

DRUGS (8)
  1. MOTRIN [Concomitant]
     Active Substance: IBUPROFEN
  2. BUPRENORPHINE AND NALOXONE [Suspect]
     Active Substance: BUPRENORPHINE\NALOXONE
     Indication: LYME DISEASE
     Dosage: ?          QUANTITY:2 3 X PER DAY;?
     Route: 048
     Dates: start: 20130601, end: 20180227
  3. HERBAL REMEDY [Concomitant]
  4. BUPRENORPHINE AND NALOXONE [Suspect]
     Active Substance: BUPRENORPHINE\NALOXONE
     Indication: PAIN
     Dosage: ?          QUANTITY:2 3 X PER DAY;?
     Route: 048
     Dates: start: 20130601, end: 20180227
  5. BUPRENORPHINE AND NALOXONE [Suspect]
     Active Substance: BUPRENORPHINE\NALOXONE
     Indication: FIBROMYALGIA
     Dosage: ?          QUANTITY:2 3 X PER DAY;?
     Route: 048
     Dates: start: 20130601, end: 20180227
  6. CLONIDINE. [Concomitant]
     Active Substance: CLONIDINE
  7. AMBIEN [Concomitant]
     Active Substance: ZOLPIDEM TARTRATE
  8. GABAPENTIN. [Concomitant]
     Active Substance: GABAPENTIN

REACTIONS (7)
  - Restless legs syndrome [None]
  - Quality of life decreased [None]
  - Depressed level of consciousness [None]
  - Fibromyalgia [None]
  - Condition aggravated [None]
  - Insomnia [None]
  - Gastrointestinal disorder [None]

NARRATIVE: CASE EVENT DATE: 20180301
